FAERS Safety Report 7371299-7 (Version None)
Quarter: 2011Q1

REPORT INFORMATION
  Report Type: 
  Country: None (occurrence: None)
  Receive Date: 20110324
  Receipt Date: 20110314
  Transmission Date: 20110831
  Serious: Yes (Hospitalization, Other)
  Sender: FDA-Public Use
  Company Number: US-JNJFOC-20110306457

PATIENT
  Sex: Female

DRUGS (18)
  1. MACROGOL [Concomitant]
     Indication: CONSTIPATION
     Route: 048
  2. MAGNESIUM OXIDE [Concomitant]
     Indication: CONSTIPATION
     Route: 048
  3. GLUTAMIC ACID [Concomitant]
     Indication: PARENTERAL NUTRITION
     Route: 065
  4. NABUMETONE [Concomitant]
     Indication: PSORIATIC ARTHROPATHY
     Route: 065
     Dates: start: 20100623, end: 20100928
  5. PROMETHAZINE [Concomitant]
     Route: 065
     Dates: start: 20100628, end: 20100715
  6. ACETYL SALICYLIC ACID [Concomitant]
     Indication: ABDOMINAL PAIN
     Route: 065
  7. IMIPRAMINE [Concomitant]
     Indication: DEPRESSION
     Route: 065
  8. DOXIL [Suspect]
     Indication: OVARIAN CANCER
     Dosage: DOXORUBICIN HYDROCHLORIDE WAS DELAYED
     Route: 042
  9. LEVOFLOXACIN [Suspect]
     Indication: URINARY TRACT INFECTION
     Route: 065
  10. ONDANSETRON [Concomitant]
     Indication: NAUSEA
     Dosage: 4 MG AS REQUIRED  4 MG ONCE
     Route: 065
  11. MORPHINE SULFATE [Concomitant]
     Indication: ABDOMINAL PAIN
     Route: 065
     Dates: start: 20100628, end: 20100629
  12. PREGABALIN [Concomitant]
     Indication: NEUROPATHY PERIPHERAL
     Route: 065
  13. PROMETHAZINE [Concomitant]
     Indication: VOMITING
     Route: 065
     Dates: start: 20100628, end: 20100715
  14. PROMETHAZINE [Concomitant]
     Indication: NAUSEA
     Route: 065
     Dates: start: 20100628, end: 20100715
  15. PROMETHAZINE [Concomitant]
     Route: 065
     Dates: start: 20100628, end: 20100715
  16. INTRAVENOUS FLUIDS [Concomitant]
     Indication: ELECTROLYTE SUBSTITUTION THERAPY
     Route: 042
     Dates: start: 20100628, end: 20100629
  17. DOCUSATE SODIUM [Concomitant]
     Indication: CONSTIPATION
     Route: 065
  18. ONDANSETRON [Concomitant]
     Indication: VOMITING
     Dosage: 4 MG AS REQUIRED  4 MG ONCE
     Route: 065

REACTIONS (8)
  - COUGH [None]
  - MALAISE [None]
  - STOMATITIS [None]
  - PYREXIA [None]
  - HIATUS HERNIA [None]
  - VOMITING [None]
  - OESOPHAGEAL ULCER [None]
  - NAUSEA [None]
